FAERS Safety Report 14075968 (Version 1)
Quarter: 2017Q4

REPORT INFORMATION
  Report Type: Spontaneous
  Country: US (occurrence: US)
  Receive Date: 20171010
  Receipt Date: 20171010
  Transmission Date: 20180321
  Serious: No
  Sender: FDA-Public Use
  Company Number: US-MYLANLABS-2017M1006812

PATIENT
  Sex: Female
  Weight: 56.69 kg

DRUGS (1)
  1. AUBRA [Suspect]
     Active Substance: ETHINYL ESTRADIOL\LEVONORGESTREL
     Indication: CONTRACEPTION
     Dosage: 0.1/0.02 MG QD
     Route: 048
     Dates: start: 2015

REACTIONS (3)
  - Abdominal distension [Not Recovered/Not Resolved]
  - Nausea [Not Recovered/Not Resolved]
  - Intentional product misuse [Recovered/Resolved]
